FAERS Safety Report 9368712 (Version 1)
Quarter: 2013Q2

REPORT INFORMATION
  Report Type: Spontaneous
  Country: FR (occurrence: FR)
  Receive Date: 20130626
  Receipt Date: 20130626
  Transmission Date: 20140414
  Serious: Yes (Hospitalization)
  Sender: FDA-Public Use
  Company Number: FR-ROCHE-1241203

PATIENT
  Age: 79 Year
  Sex: Female

DRUGS (5)
  1. ZELBORAF [Suspect]
     Indication: MALIGNANT MELANOMA STAGE IV
     Dosage: 240 MG
     Route: 048
     Dates: start: 201212, end: 20130503
  2. LEXOMIL [Concomitant]
     Route: 048
  3. PROZAC [Concomitant]
     Dosage: 20 MG
     Route: 048
  4. EFFERALGAN [Concomitant]
     Indication: PAIN
     Route: 048
  5. MICARDIS [Concomitant]
     Indication: HYPERTENSION
     Dosage: 40 MG
     Route: 048

REACTIONS (3)
  - Panniculitis [Recovered/Resolved]
  - Asthenia [Recovered/Resolved]
  - Arthralgia [Recovered/Resolved]
